FAERS Safety Report 14555140 (Version 1)
Quarter: 2018Q1

REPORT INFORMATION
  Report Type: Spontaneous
  Country: US (occurrence: US)
  Receive Date: 20180220
  Receipt Date: 20180220
  Transmission Date: 20180509
  Serious: Yes (Hospitalization)
  Sender: FDA-Public Use
  Company Number: US-ELI_LILLY_AND_COMPANY-US201802006321

PATIENT
  Sex: Male

DRUGS (2)
  1. ZYPREXA [Suspect]
     Active Substance: OLANZAPINE
     Indication: SCHIZOPHRENIA
     Dosage: 10 MG, EACH EVENING
     Route: 048
     Dates: start: 2015
  2. PROLIXIN [Suspect]
     Active Substance: FLUPHENAZINE HYDROCHLORIDE
     Indication: SCHIZOPHRENIA
     Dosage: UNK, UNKNOWN
     Route: 065

REACTIONS (9)
  - Sensory disturbance [Recovered/Resolved]
  - Insomnia [Not Recovered/Not Resolved]
  - Pain [Not Recovered/Not Resolved]
  - Dysuria [Recovered/Resolved]
  - Energy increased [Not Recovered/Not Resolved]
  - Drug withdrawal syndrome [Unknown]
  - Vocal cord paralysis [Not Recovered/Not Resolved]
  - Decreased appetite [Not Recovered/Not Resolved]
  - Hypophagia [Not Recovered/Not Resolved]
